FAERS Safety Report 9601619 (Version 2)
Quarter: 2013Q4

REPORT INFORMATION
  Report Type: Spontaneous
  Country: ES (occurrence: ES)
  Receive Date: 20131007
  Receipt Date: 20131009
  Transmission Date: 20140711
  Serious: Yes (Other)
  Sender: FDA-Public Use
  Company Number: ES-JNJFOC-20130916769

PATIENT
  Age: 51 Year
  Sex: Male
  Weight: 83 kg

DRUGS (8)
  1. REMICADE [Suspect]
     Indication: CROHN^S DISEASE
     Route: 042
     Dates: start: 20121121, end: 20130514
  2. IMUREL [Suspect]
     Indication: CROHN^S DISEASE
     Route: 048
     Dates: start: 2003, end: 20130514
  3. PLAVIX [Concomitant]
     Dosage: FOR 3 MONTHS
     Route: 065
  4. RANITIDINE [Concomitant]
     Dosage: 300 UNITS UNSPECIFIED
     Route: 065
  5. RAMIPRIL [Concomitant]
     Route: 065
  6. ADIRO [Concomitant]
     Dosage: 100 UNITS UNSPECIFIED
     Route: 065
  7. BISOPROLOL FUMARATE [Concomitant]
     Route: 065
  8. CARDYL [Concomitant]
     Dosage: 10 UNITS UNSPECIFIED
     Route: 065

REACTIONS (5)
  - Herpes zoster [Recovered/Resolved]
  - Psoriasis [Not Recovered/Not Resolved]
  - Anal fistula [Unknown]
  - Nephrolithiasis [Unknown]
  - Blood calcium increased [Unknown]
